FAERS Safety Report 14318803 (Version 1)
Quarter: 2017Q4

REPORT INFORMATION
  Report Type: Spontaneous
  Country: US (occurrence: US)
  Receive Date: 20171222
  Receipt Date: 20171222
  Transmission Date: 20180321
  Serious: No
  Sender: FDA-Public Use
  Company Number: US-ASTRAZENECA-2017SF25701

PATIENT
  Age: 70 Year
  Sex: Male

DRUGS (1)
  1. BEVESPI AEROSPHERE [Suspect]
     Active Substance: FORMOTEROL FUMARATE\GLYCOPYRROLATE
     Dosage: UNKNOWN
     Route: 055

REACTIONS (6)
  - Chronic obstructive pulmonary disease [Unknown]
  - Dry eye [Unknown]
  - Dry mouth [Unknown]
  - Sjogren^s syndrome [Unknown]
  - Oral candidiasis [Unknown]
  - Secretion discharge [Unknown]
